FAERS Safety Report 6881402-0 (Version None)
Quarter: 2010Q3

REPORT INFORMATION
  Report Type: 
  Country: None (occurrence: None)
  Receive Date: 20100728
  Receipt Date: 20090925
  Transmission Date: 20110219
  Serious: No
  Sender: FDA-Public Use
  Company Number: -MYLANLABS-2009S1016912

PATIENT
  Age: 43 Year
  Sex: Male

DRUGS (6)
  1. MILNACIPRAN HYDROCHLORIDE [Suspect]
     Indication: PAIN
     Route: 048
     Dates: start: 20090718, end: 20090718
  2. MILNACIPRAN HYDROCHLORIDE [Suspect]
     Route: 048
     Dates: start: 20090719, end: 20090720
  3. MILNACIPRAN HYDROCHLORIDE [Suspect]
     Route: 048
     Dates: start: 20090721, end: 20090724
  4. MILNACIPRAN HYDROCHLORIDE [Suspect]
     Route: 048
     Dates: start: 20090725, end: 20090730
  5. TRAMADOL HYDROCHLORIDE [Suspect]
     Indication: PAIN
     Route: 048
     Dates: start: 20090718, end: 20090730
  6. AMBIEN [Concomitant]

REACTIONS (3)
  - DECREASED APPETITE [None]
  - MUSCLE SPASMS [None]
  - TREMOR [None]
